FAERS Safety Report 6566690 (Version 1)
Quarter: 2020Q3

REPORT INFORMATION
  Report Type: Spontaneous
  Country: DE (occurrence: DE)
  Receive Date: 20080229
  Receipt Date: 20080229
  Transmission Date: 20201105
  Serious: Yes (Other)
  Sender: FDA-Public Use
  Company Number: DE-ROCHE-548739

PATIENT
  Age: 70 Year
  Sex: Male

DRUGS (1)
  1. IBANDRONIC ACID. [Suspect]
     Active Substance: IBANDRONIC ACID
     Route: 065
     Dates: start: 2006

REACTIONS (2)
  - Osteonecrosis [Not Recovered/Not Resolved]
  - Oral cavity fistula [Not Recovered/Not Resolved]
